FAERS Safety Report 18690460 (Version 1)
Quarter: 2020Q4

REPORT INFORMATION
  Report Type: Spontaneous
  Country: US (occurrence: US)
  Receive Date: 20201231
  Receipt Date: 20201231
  Transmission Date: 20210114
  Serious: No
  Sender: FDA-Public Use
  Company Number: US-LUPIN PHARMACEUTICALS INC.-2020-06535

PATIENT
  Age: 30 Year
  Sex: Female

DRUGS (11)
  1. METOCLOPRAMIDE. [Suspect]
     Active Substance: METOCLOPRAMIDE
     Indication: ANAESTHETIC PREMEDICATION
     Dosage: 10 MILLIGRAM
     Route: 065
  2. CITRIC ACID MONOHYDRATE;SODIUM CITRATE [Suspect]
     Active Substance: CITRIC ACID MONOHYDRATE\SODIUM CITRATE
     Indication: ANAESTHETIC PREMEDICATION
     Dosage: 30 MILLILITER
     Route: 065
  3. CISATRACURIUM. [Suspect]
     Active Substance: CISATRACURIUM
     Indication: ANAESTHETIC PREMEDICATION
     Dosage: 4 MILLIGRAM
     Route: 065
  4. SUCCINYLCHOLINE BROMIDE [Suspect]
     Active Substance: SUXAMETHONIUM BROMIDE
     Indication: ANAESTHETIC PREMEDICATION
     Dosage: 120 MILLIGRAM
     Route: 065
  5. LIDOCAINE. [Suspect]
     Active Substance: LIDOCAINE
     Indication: ANAESTHETIC PREMEDICATION
     Dosage: 30 MILLIGRAM
     Route: 065
  6. PROPOFOL. [Suspect]
     Active Substance: PROPOFOL
     Indication: ANAESTHETIC PREMEDICATION
     Dosage: 60 MILLIGRAM
     Route: 065
  7. GLYCOPYRROLATE [GLYCOPYRRONIUM BROMIDE] [Suspect]
     Active Substance: GLYCOPYRROLATE
     Indication: ILL-DEFINED DISORDER
     Dosage: 0.6 MILLIGRAM
     Route: 065
  8. NEOSTIGMINE [NEOSTIGMINE BROMIDE] [Suspect]
     Active Substance: NEOSTIGMINE BROMIDE
     Indication: ILL-DEFINED DISORDER
     Dosage: 3 MILLIGRAM
     Route: 065
  9. FAMOTIDINE. [Suspect]
     Active Substance: FAMOTIDINE
     Indication: ANAESTHETIC PREMEDICATION
     Dosage: 20 MILLIGRAM
     Route: 065
  10. FENTANYL. [Suspect]
     Active Substance: FENTANYL
     Indication: ANAESTHETIC PREMEDICATION
     Dosage: 50 MICROGRAM
     Route: 065
  11. HEPARIN [Suspect]
     Active Substance: HEPARIN SODIUM
     Indication: COAGULOPATHY
     Dosage: 7000 INTERNATIONAL UNIT
     Route: 065

REACTIONS (2)
  - Maternal exposure during pregnancy [Unknown]
  - Normal newborn [Unknown]
